FAERS Safety Report 16118385 (Version 1)
Quarter: 2019Q1

REPORT INFORMATION
  Report Type: Spontaneous
  Country: US (occurrence: US)
  Receive Date: 20190326
  Receipt Date: 20190326
  Transmission Date: 20190418
  Serious: No
  Sender: FDA-Public Use
  Company Number: US-SA-2019SA002689

PATIENT
  Age: 74 Year
  Sex: Female

DRUGS (1)
  1. LANTUS SOLOSTAR [Suspect]
     Active Substance: INSULIN GLARGINE
     Dosage: 70 U, QD
     Route: 065

REACTIONS (3)
  - Hypersensitivity [Unknown]
  - Dermatitis allergic [Unknown]
  - Inflammation [Unknown]
